FAERS Safety Report 5287423-6 (Version None)
Quarter: 2007Q1

REPORT INFORMATION
  Report Type: 
  Country: None (occurrence: None)
  Receive Date: 20070116
  Receipt Date: 20060927
  Transmission Date: 20070707
  Serious: No
  Sender: FDA-Public Use
  Company Number: 2006SP003444

PATIENT
  Age: 67 Year
  Sex: Female
  Weight: 71.6683 kg

DRUGS (11)
  1. LUNESTA [Suspect]
     Indication: INSOMNIA
     Dosage: SEE IMAGE
     Route: 048
     Dates: start: 20060501, end: 20060601
  2. LUNESTA [Suspect]
     Indication: INSOMNIA
     Dosage: SEE IMAGE
     Route: 048
     Dates: start: 20060601
  3. SYNTHROID [Concomitant]
  4. LASIX [Concomitant]
  5. ALLEGRA [Concomitant]
  6. NAPROSYN [Concomitant]
  7. OMEPRAZOLE [Concomitant]
  8. FOSAMAX [Concomitant]
  9. VITAMINS [Concomitant]
  10. FLEXERIL [Concomitant]
  11. SONATA [Concomitant]

REACTIONS (2)
  - FEELING ABNORMAL [None]
  - INSOMNIA [None]
